FAERS Safety Report 14785589 (Version 1)
Quarter: 2018Q2

REPORT INFORMATION
  Report Type: Spontaneous
  Country: US (occurrence: US)
  Receive Date: 20180420
  Receipt Date: 20180420
  Transmission Date: 20180711
  Serious: Yes (Other)
  Sender: FDA-Public Use
  Company Number: US-TEVA-2018-US-883319

PATIENT
  Sex: Female

DRUGS (1)
  1. VENLAFAXINE HYDROCHLORIDE. [Suspect]
     Active Substance: VENLAFAXINE HYDROCHLORIDE
     Route: 065

REACTIONS (10)
  - Balance disorder [Unknown]
  - Nausea [Unknown]
  - Hyperhidrosis [Unknown]
  - Paraesthesia [Unknown]
  - Tremor [Unknown]
  - Blood pressure increased [Unknown]
  - Sensitisation [Unknown]
  - Product substitution issue [Unknown]
  - Dizziness [Unknown]
  - Heart rate increased [Unknown]
